FAERS Safety Report 15716813 (Version 8)
Quarter: 2019Q3

REPORT INFORMATION
  Report Type: Spontaneous
  Country: GB (occurrence: GB)
  Receive Date: 20181213
  Receipt Date: 20190910
  Transmission Date: 20191004
  Serious: Yes (Life-Threatening, Hospitalization, Other)
  Sender: FDA-Public Use
  Company Number: GB-AUROBINDO-AUR-APL-2014-11045

PATIENT

DRUGS (7)
  1. COCODAMOL [Suspect]
     Active Substance: ACETAMINOPHEN\CODEINE PHOSPHATE
     Dosage: UNK, ONCE A DAY
     Route: 048
  2. ENOXAPARIN [Concomitant]
     Active Substance: ENOXAPARIN
     Indication: PRODUCT USED FOR UNKNOWN INDICATION
     Dosage: UNK
     Route: 065
  3. CEFRADINE [Concomitant]
     Active Substance: CEPHRADINE
     Indication: PRODUCT USED FOR UNKNOWN INDICATION
     Dosage: UNK
     Route: 065
  4. METRONIDAZOLE. [Concomitant]
     Active Substance: METRONIDAZOLE
     Indication: PYELONEPHRITIS
     Dosage: UNK
     Route: 065
  5. COCODAMOL [Suspect]
     Active Substance: ACETAMINOPHEN\CODEINE PHOSPHATE
     Indication: PELVIC PAIN
     Dosage: UNK, FOUR TIMES/DAY
     Route: 048
  6. FLUOXETINE [Concomitant]
     Active Substance: FLUOXETINE HYDROCHLORIDE
     Indication: PRODUCT USED FOR UNKNOWN INDICATION
     Dosage: UNK
     Route: 065
  7. PARACETAMOL TABLET [Suspect]
     Active Substance: ACETAMINOPHEN
     Indication: PELVIC PAIN
     Dosage: UNK, ONCE A DAY, UP TO FOUR DOSES PER DAY
     Route: 048

REACTIONS (18)
  - Malaise [Recovered/Resolved]
  - Fear of death [Unknown]
  - Hepatic failure [Recovered/Resolved]
  - Caesarean section [Unknown]
  - Liver disorder [Recovered/Resolved]
  - Asthenia [Unknown]
  - Hepatotoxicity [Recovered/Resolved]
  - Maternal exposure during pregnancy [Recovered/Resolved]
  - Accidental overdose [Recovered/Resolved]
  - Premature labour [Unknown]
  - Fear [Unknown]
  - Feeling guilty [Unknown]
  - Depressed level of consciousness [Unknown]
  - Asthenopia [Unknown]
  - Live birth [Unknown]
  - Consciousness fluctuating [Unknown]
  - Uterine hypertonus [Unknown]
  - Crying [Unknown]
